FAERS Safety Report 21956421 (Version 1)
Quarter: 2023Q1

REPORT INFORMATION
  Report Type: Report from Study
  Country: CA (occurrence: CA)
  Receive Date: 20230206
  Receipt Date: 20230206
  Transmission Date: 20230417
  Serious: Yes (Other)
  Sender: FDA-Public Use
  Company Number: None

PATIENT
  Age: 58 Year
  Sex: Female

DRUGS (7)
  1. METHOTREXATE SODIUM [Suspect]
     Active Substance: METHOTREXATE SODIUM
     Indication: Product used for unknown indication
  2. SECUKINUMAB [Suspect]
     Active Substance: SECUKINUMAB
     Indication: Psoriasis
     Dosage: 1 EVERY 1 MONTHS
     Route: 058
  3. ACITRETIN [Concomitant]
     Active Substance: ACITRETIN
  4. CLOBETASOL [Concomitant]
     Active Substance: CLOBETASOL
  5. STELARA [Concomitant]
     Active Substance: USTEKINUMAB
     Dosage: SOLUTION SUBCUTANEOUS
  6. SECUKINUMAB [Suspect]
     Active Substance: SECUKINUMAB
     Indication: Psoriasis
     Dosage: 1 EVERY 1 MONTHS
     Route: 058
  7. SECUKINUMAB [Suspect]
     Active Substance: SECUKINUMAB
     Indication: Psoriasis
     Dosage: 1 EVERY 1 MONTHS
     Route: 058

REACTIONS (12)
  - Cellulitis [Unknown]
  - Drug ineffective [Unknown]
  - Emotional distress [Unknown]
  - Erythema [Unknown]
  - Induration [Unknown]
  - Pain of skin [Unknown]
  - Product use issue [Unknown]
  - Pruritus [Unknown]
  - Psoriasis [Unknown]
  - Rash [Unknown]
  - Self-consciousness [Unknown]
  - Skin exfoliation [Unknown]
